FAERS Safety Report 8371438-5 (Version None)
Quarter: 2012Q2

REPORT INFORMATION
  Report Type: 
  Country: None (occurrence: None)
  Receive Date: 20120517
  Receipt Date: 20120502
  Transmission Date: 20120825
  Serious: Yes (Other)
  Sender: FDA-Public Use
  Company Number: US-DEXPHARM-20120466

PATIENT
  Age: 38 Year
  Sex: Female

DRUGS (1)
  1. CHLORHEXIDINE GLUCONATE [Suspect]

REACTIONS (4)
  - BURNS SECOND DEGREE [None]
  - CHEMICAL INJURY [None]
  - ERYTHEMA [None]
  - SCAR [None]
